FAERS Safety Report 5610118-3 (Version None)
Quarter: 2008Q1

REPORT INFORMATION
  Report Type: 
  Country: None (occurrence: None)
  Receive Date: 20080131
  Receipt Date: 20080108
  Transmission Date: 20080703
  Serious: No
  Sender: FDA-Public Use
  Company Number: US-BAYER-200810676NA

PATIENT
  Age: 25 Year
  Sex: Female
  Weight: 129 kg

DRUGS (2)
  1. MIRENA [Suspect]
     Indication: CONTRACEPTION
     Route: 015
     Dates: start: 20070618, end: 20071219
  2. TOPROL-XL [Concomitant]
     Indication: BLOOD PRESSURE INCREASED
     Route: 048

REACTIONS (1)
  - ABDOMINAL PAIN [None]
